FAERS Safety Report 5357365-6 (Version None)
Quarter: 2007Q2

REPORT INFORMATION
  Report Type: 
  Country: None (occurrence: None)
  Receive Date: 20070614
  Receipt Date: 20070606
  Transmission Date: 20071010
  Serious: Yes (Hospitalization)
  Sender: FDA-Public Use
  Company Number: B0471820A

PATIENT
  Age: 60 Year
  Sex: Female
  Weight: 90 kg

DRUGS (9)
  1. GW679769 [Suspect]
     Route: 050
     Dates: start: 20070511, end: 20070513
  2. DEXAMETHASONE 0.5MG TAB [Suspect]
     Route: 042
     Dates: start: 20070511, end: 20070511
  3. ZOFRAN [Suspect]
     Route: 048
     Dates: start: 20070511, end: 20070513
  4. PENICILLIN [Suspect]
     Route: 042
     Dates: start: 20070520, end: 20070520
  5. CYCLOPHOSPHAMIDE [Suspect]
     Indication: BREAST CANCER
     Dosage: 1200MG CYCLIC
     Route: 042
     Dates: start: 20070321
  6. EPIRUBICIN [Suspect]
     Indication: BREAST CANCER
     Dosage: 120MG CYCLIC
     Route: 042
     Dates: start: 20070321
  7. FLUOROURACIL [Suspect]
     Indication: BREAST CANCER
     Dosage: 1200MG CYCLIC
     Route: 042
     Dates: start: 20070321
  8. ZOVIRAX [Concomitant]
     Indication: HERPES ZOSTER
     Dosage: 800MG FIVE TIMES PER DAY
     Route: 048
     Dates: start: 20070518
  9. LORABENZ [Concomitant]
     Indication: ANXIETY
     Dosage: 1MG AS REQUIRED
     Route: 048
     Dates: start: 20070518

REACTIONS (1)
  - PHARYNGITIS [None]
